FAERS Safety Report 8072511-1 (Version None)
Quarter: 2012Q1

REPORT INFORMATION
  Report Type: 
  Country: None (occurrence: None)
  Receive Date: 20120126
  Receipt Date: 20120119
  Transmission Date: 20120608
  Serious: Yes (Other)
  Sender: FDA-Public Use
  Company Number: GB-PFIZER INC-2011240704

PATIENT
  Age: 66 Year
  Sex: Male
  Weight: 61 kg

DRUGS (5)
  1. XALATAN [Suspect]
     Indication: INTRAOCULAR PRESSURE INCREASED
     Dosage: 1 GTT, 1X/DAY IN BOTH EYES
     Route: 047
     Dates: start: 20110919
  2. XALATAN [Suspect]
     Dosage: 1 GTT, 1X/DAY IN BOTH EYES
     Route: 047
     Dates: start: 20111003
  3. AMOXIL [Suspect]
     Dosage: UNK
  4. PENICILLIN NOS [Suspect]
     Dosage: UNK
  5. RAMIPRIL [Concomitant]
     Indication: HYPERTENSION
     Dosage: UNK

REACTIONS (5)
  - NASOPHARYNGITIS [None]
  - MALAISE [None]
  - RESPIRATORY DISORDER [None]
  - ASTHENIA [None]
  - BLOOD PRESSURE INCREASED [None]
